FAERS Safety Report 8383083-6 (Version None)
Quarter: 2012Q2

REPORT INFORMATION
  Report Type: 
  Country: None (occurrence: None)
  Receive Date: 20120524
  Receipt Date: 20120518
  Transmission Date: 20120825
  Serious: Yes (Other)
  Sender: FDA-Public Use
  Company Number: US-AMGEN-USASP2012031883

PATIENT
  Sex: Female

DRUGS (2)
  1. PROCRIT [Suspect]
     Indication: ADIPOSIS DOLOROSA
     Dosage: 40000 IU, 3 TIMES/WK
     Dates: start: 20070101
  2. PROCRIT [Suspect]
     Dosage: UNK UNK, 3 TIMES/WK
     Dates: end: 20110101

REACTIONS (6)
  - HYPERTENSION [None]
  - WEIGHT INCREASED [None]
  - SUBCUTANEOUS NODULE [None]
  - DIABETES MELLITUS [None]
  - HAEMOGLOBIN ABNORMAL [None]
  - WEIGHT DECREASED [None]
